FAERS Safety Report 9101161 (Version 1)
Quarter: 2013Q1

REPORT INFORMATION
  Report Type: Spontaneous
  Country: JP (occurrence: JP)
  Receive Date: 20130218
  Receipt Date: 20130218
  Transmission Date: 20140127
  Serious: Yes (Other)
  Sender: FDA-Public Use
  Company Number: PHHY2013JP014644

PATIENT
  Sex: 0

DRUGS (12)
  1. HYDRALAZINE [Suspect]
     Indication: HYPERTENSION
     Dosage: MATERNAL DOSE: UNKNOWN
     Route: 048
  2. NICORANDIL [Concomitant]
     Indication: PRINZMETAL ANGINA
     Dosage: 15 MG, DAILY
     Route: 048
  3. NICORANDIL [Concomitant]
     Dosage: 0.5 UG/KG/MIN, UNK
  4. LABETALOL HYDROCHLORIDE [Concomitant]
     Indication: HYPERTENSION
     Route: 048
  5. PROPOFOL [Concomitant]
     Dosage: 3 UG/ML, UNK
  6. PHENTANYL [Concomitant]
     Dosage: 3 UG/ML, UNK
  7. PHENTANYL [Concomitant]
     Dosage: 10 UG, UNK
  8. BUPIVACAINA HIPERBARICA BRAUN [Concomitant]
     Dosage: 2.2 ML (0.5%)
  9. MORPHINE [Concomitant]
     Dosage: 150 UG, UNK
  10. LIDOCAINE [Concomitant]
     Dosage: 9 ML (2%)
     Route: 008
  11. ROPIVACAINE [Concomitant]
     Dosage: 9 ML ()0.375%
     Route: 008
  12. OXYTOCIN [Concomitant]
     Dosage: 30 U, UNK
     Route: 042

REACTIONS (2)
  - Premature baby [Unknown]
  - Foetal exposure during pregnancy [Unknown]
